FAERS Safety Report 16742676 (Version 2)
Quarter: 2019Q3

REPORT INFORMATION
  Report Type: Spontaneous
  Country: JP (occurrence: JP)
  Receive Date: 20190826
  Receipt Date: 20190911
  Transmission Date: 20191005
  Serious: Yes (Death, Hospitalization, Other)
  Sender: FDA-Public Use
  Company Number: JP-009507513-1905JPN002508J

PATIENT
  Age: 73 Year
  Sex: Male
  Weight: 47 kg

DRUGS (3)
  1. KEYTRUDA [Suspect]
     Active Substance: PEMBROLIZUMAB
     Indication: NON-SMALL CELL LUNG CANCER
     Dosage: 200 MILLIGRAM, Q3W
     Route: 041
     Dates: start: 20190424, end: 20190606
  2. ABRAXANE [Suspect]
     Active Substance: PACLITAXEL
     Indication: NON-SMALL CELL LUNG CANCER
     Dosage: 100 MILLIGRAM/SQ. METER, ONCE
     Route: 041
     Dates: start: 20190704, end: 20190704
  3. CARBOPLATIN. [Suspect]
     Active Substance: CARBOPLATIN
     Indication: NON-SMALL CELL LUNG CANCER
     Dosage: 350 UNK, ONCE
     Route: 041
     Dates: start: 20190704, end: 20190704

REACTIONS (4)
  - Malignant neoplasm progression [Fatal]
  - Corneal disorder [Recovered/Resolved]
  - Lymphangiosis carcinomatosa [Unknown]
  - Interstitial lung disease [Fatal]

NARRATIVE: CASE EVENT DATE: 2019
